FAERS Safety Report 7512685-1 (Version None)
Quarter: 2011Q2

REPORT INFORMATION
  Report Type: 
  Country: None (occurrence: None)
  Receive Date: 20110531
  Receipt Date: 20090930
  Transmission Date: 20111010
  Serious: Yes (Other)
  Sender: FDA-Public Use
  Company Number: US-BAYER-200934398NA

PATIENT
  Age: 63 Year
  Sex: Male
  Weight: 170 kg

DRUGS (8)
  1. ACETYLSALICYLIC ACID SRT [Concomitant]
     Dosage: 81 MG, QD
     Route: 048
     Dates: start: 20030409
  2. DOPAMINE HCL [Concomitant]
     Dosage: TITRATED
     Route: 042
     Dates: start: 20030721
  3. HEPARIN [Concomitant]
     Dosage: UNK
     Route: 042
     Dates: start: 20030721, end: 20030721
  4. PRINIVIL [Concomitant]
  5. ZESTRIL [Concomitant]
  6. TRASYLOL [Suspect]
     Indication: CORONARY ARTERY BYPASS
     Dosage: UNK
     Route: 042
     Dates: start: 20030721, end: 20030721
  7. MANNITOL [Concomitant]
     Dosage: UNK
     Route: 042
     Dates: start: 20030721, end: 20030721
  8. NAPROXEN [Concomitant]

REACTIONS (10)
  - RENAL INJURY [None]
  - PAIN [None]
  - RENAL FAILURE [None]
  - STRESS [None]
  - ANXIETY [None]
  - UNEVALUABLE EVENT [None]
  - FEAR [None]
  - EMOTIONAL DISTRESS [None]
  - RENAL IMPAIRMENT [None]
  - INJURY [None]
